FAERS Safety Report 11114986 (Version 1)
Quarter: 2015Q2

REPORT INFORMATION
  Report Type: Report from Study
  Country: US (occurrence: US)
  Receive Date: 20150515
  Receipt Date: 20150515
  Transmission Date: 20150821
  Serious: Yes (Hospitalization)
  Sender: FDA-Public Use
  Company Number: US-BIOGENIDEC-2015BI062788

PATIENT
  Age: 45 Year
  Sex: Male

DRUGS (1)
  1. TECFIDERA [Suspect]
     Active Substance: DIMETHYL FUMARATE
     Indication: MULTIPLE SCLEROSIS
     Route: 048
     Dates: start: 20150414, end: 20150505

REACTIONS (4)
  - Abdominal pain upper [Unknown]
  - Pneumonia [Not Recovered/Not Resolved]
  - Nausea [Unknown]
  - White blood cell count abnormal [Unknown]

NARRATIVE: CASE EVENT DATE: 20150504
